FAERS Safety Report 24623719 (Version 2)
Quarter: 2024Q4

REPORT INFORMATION
  Report Type: Spontaneous
  Country: US (occurrence: US)
  Receive Date: 20241115
  Receipt Date: 20241129
  Transmission Date: 20250114
  Serious: Yes (Other)
  Sender: TORRENT PHARMA INC.
  Company Number: US-TORRENT-00013837

PATIENT
  Age: 29 Year
  Sex: Female
  Weight: 58 kg

DRUGS (3)
  1. TIOPRONIN [Suspect]
     Active Substance: TIOPRONIN
     Indication: Cystinuria
     Dosage: ONE 300 MG TABLET BY MOUTH 3 TIMES DAY
     Route: 048
  2. POTASSIUM CITRATE [Concomitant]
     Active Substance: POTASSIUM CITRATE
     Indication: Cystinuria
     Dosage: 15 MEQ, TWICE A DAY
     Route: 065
  3. SODIUM BICARBONATE [Concomitant]
     Active Substance: SODIUM BICARBONATE
     Indication: Cystinuria
     Dosage: 325 MG, TWICE A DAY
     Route: 065

REACTIONS (2)
  - Nephrolithiasis [Unknown]
  - Product substitution issue [Unknown]
